FAERS Safety Report 7933587-2 (Version None)
Quarter: 2011Q4

REPORT INFORMATION
  Report Type: 
  Country: None (occurrence: None)
  Receive Date: 20111122
  Receipt Date: 20111117
  Transmission Date: 20120403
  Serious: Yes (Hospitalization, Other)
  Sender: FDA-Public Use
  Company Number: AU-ELI_LILLY_AND_COMPANY-AU201110005441

PATIENT
  Age: 68 Year
  Sex: Female
  Weight: 66 kg

DRUGS (6)
  1. DEXAMETHASONE [Concomitant]
     Dosage: 2 MG, QD
  2. FOLIC ACID [Concomitant]
     Dosage: 0.5 MG, UNK
     Dates: start: 20110714
  3. OXYCONTIN [Concomitant]
  4. ALIMTA [Suspect]
     Indication: LUNG ADENOCARCINOMA METASTATIC
     Dosage: 500 MG/M2, EVERY THREE WEEKS
     Route: 042
     Dates: start: 20110714, end: 20110920
  5. VITAMIN B-12 [Concomitant]
     Dosage: 1000 UG, UNK
     Dates: start: 20110714
  6. CORTICOSTEROIDS [Concomitant]
     Dosage: 4 MG, BID
     Dates: start: 20110712

REACTIONS (2)
  - NECROSIS [None]
  - RASH [None]
